FAERS Safety Report 9408400 (Version 2)
Quarter: 2014Q1

REPORT INFORMATION
  Report Type: Report from Study
  Country: IT (occurrence: IT)
  Receive Date: 20130718
  Receipt Date: 20140213
  Transmission Date: 20141002
  Serious: Yes (Death)
  Sender: FDA-Public Use
  Company Number: IT-AMGEN-ITACT2013050204

PATIENT
  Age: 62 Year
  Sex: Male

DRUGS (8)
  1. DENOSUMAB [Suspect]
     Indication: NON-SMALL CELL LUNG CANCER
     Dosage: 120 MG, Q4WK
     Route: 058
     Dates: start: 20130212, end: 201304
  2. DENOSUMAB [Suspect]
     Indication: METASTASES TO BONE
  3. KEPPRA [Concomitant]
  4. LYRICA [Concomitant]
  5. JURNISTA [Concomitant]
  6. XANAX [Concomitant]
  7. PANTORC [Concomitant]
  8. TARCEVA [Concomitant]
     Dosage: UNK
     Dates: start: 20130510

REACTIONS (1)
  - Disease progression [Fatal]
